FAERS Safety Report 10229980 (Version 3)
Quarter: 2014Q3

REPORT INFORMATION
  Report Type: Spontaneous
  Country: DE (occurrence: None)
  Receive Date: 20140609
  Receipt Date: 20140725
  Transmission Date: 20150326
  Serious: Yes (Other)
  Sender: FDA-Public Use
  Company Number: ADR-2014-00970

PATIENT
  Age: 33 Year
  Sex: Male

DRUGS (4)
  1. MSI 200 MG MUNDIPHARMA [Suspect]
     Active Substance: MORPHINE SULFATE
  2. CLONIDINE. [Suspect]
     Active Substance: CLONIDINE
  3. LIORESAL [Suspect]
     Active Substance: BACLOFEN
  4. MORPHINE [Suspect]
     Active Substance: MORPHINE

REACTIONS (11)
  - Unevaluable event [None]
  - Device physical property issue [None]
  - Muscle spasticity [None]
  - Device deposit issue [None]
  - Weight increased [None]
  - Device infusion issue [None]
  - Inadequate analgesia [None]
  - Device damage [None]
  - Restlessness [None]
  - Scratch [None]
  - Hypervigilance [None]
